FAERS Safety Report 20719001 (Version 1)
Quarter: 2022Q2

REPORT INFORMATION
  Report Type: Spontaneous
  Country: GB (occurrence: GB)
  Receive Date: 20220418
  Receipt Date: 20220418
  Transmission Date: 20220720
  Serious: Yes (Hospitalization, Other)
  Sender: FDA-Public Use
  Company Number: None

PATIENT
  Age: 30 Year
  Sex: Female

DRUGS (8)
  1. LEVETIRACETAM [Suspect]
     Active Substance: LEVETIRACETAM
     Indication: Epilepsy
     Dosage: 250MG TWICE A DAY
     Dates: start: 20220317, end: 20220404
  2. VENTOLIN [Concomitant]
     Active Substance: ALBUTEROL SULFATE
  3. CALCIUM CARBONATE\CHOLECALCIFEROL [Concomitant]
     Active Substance: CALCIUM CARBONATE\CHOLECALCIFEROL
     Indication: Gastric bypass
  4. CODEINE [Concomitant]
     Active Substance: CODEINE
  5. CYCLIZINE [Concomitant]
     Active Substance: CYCLIZINE
  6. FOLIC ACID [Concomitant]
     Active Substance: FOLIC ACID
     Indication: Gastric bypass
  7. HYDROCORTISONE [Concomitant]
     Active Substance: HYDROCORTISONE
     Dates: start: 20220330
  8. UNSPECIFIED INGREDIENT [Concomitant]
     Active Substance: UNSPECIFIED INGREDIENT
     Dosage: EFFERVESCENT

REACTIONS (1)
  - Skin exfoliation [Not Recovered/Not Resolved]

NARRATIVE: CASE EVENT DATE: 20220330
